FAERS Safety Report 9997939 (Version 1)
Quarter: 2014Q1

REPORT INFORMATION
  Report Type: Spontaneous
  Country: US (occurrence: US)
  Receive Date: 20140311
  Receipt Date: 20140311
  Transmission Date: 20141002
  Serious: No
  Sender: FDA-Public Use
  Company Number: US-ASTRAZENECA-2014SE15373

PATIENT
  Age: 49 Year
  Sex: Female
  Weight: 104.3 kg

DRUGS (10)
  1. NEXIUM [Suspect]
     Indication: BARRETT^S OESOPHAGUS
     Route: 048
     Dates: start: 2011, end: 2012
  2. NEXIUM [Suspect]
     Indication: GASTROOESOPHAGEAL REFLUX DISEASE
     Route: 048
     Dates: start: 2011, end: 2012
  3. NEXIUM [Suspect]
     Indication: BARRETT^S OESOPHAGUS
     Route: 048
  4. NEXIUM [Suspect]
     Indication: GASTROOESOPHAGEAL REFLUX DISEASE
     Route: 048
  5. KOMBIGLYZE XR [Suspect]
     Indication: DIABETES MELLITUS
     Route: 048
     Dates: start: 2012
  6. LIPITOR [Concomitant]
     Indication: BLOOD CHOLESTEROL
     Route: 048
     Dates: start: 201302
  7. CELEXA [Concomitant]
     Indication: POST-TRAUMATIC STRESS DISORDER
     Route: 048
     Dates: start: 2003
  8. DIOVAN [Concomitant]
     Indication: BLOOD PRESSURE
     Route: 048
     Dates: start: 2012
  9. MAXAIR INHALER [Concomitant]
     Indication: ASTHMA
     Route: 055
  10. ADVAIR [Concomitant]
     Indication: ASTHMA
     Dosage: ADVAIR 250 1DF = 2PUFFS
     Route: 055
     Dates: start: 1987

REACTIONS (3)
  - Vitamin D decreased [Unknown]
  - Barrett^s oesophagus [Unknown]
  - Off label use [Unknown]
